FAERS Safety Report 14616249 (Version 1)
Quarter: 2018Q1

REPORT INFORMATION
  Report Type: Spontaneous
  Country: ES (occurrence: ES)
  Receive Date: 20180309
  Receipt Date: 20180309
  Transmission Date: 20180509
  Serious: Yes (Life-Threatening, Hospitalization)
  Sender: FDA-Public Use
  Company Number: ES-SUN PHARMACEUTICAL INDUSTRIES LTD-2018RR-165546

PATIENT
  Age: 80 Year
  Sex: Female

DRUGS (6)
  1. SERTRALINE [Suspect]
     Active Substance: SERTRALINE HYDROCHLORIDE
     Indication: PRODUCT USED FOR UNKNOWN INDICATION
     Dosage: 50 MG, QD
     Route: 048
     Dates: start: 201601
  2. ALDACTONE [Interacting]
     Active Substance: SPIRONOLACTONE
     Indication: CARDIAC FAILURE
     Dosage: 38 MG, QD
     Route: 048
     Dates: end: 20160702
  3. SEGURIL 20 MG/2ML SOLUCION INYECTABLE , 5 AMPOLLAS DE 2 ML [Interacting]
     Active Substance: FUROSEMIDE
     Indication: CARDIAC FAILURE
     Dosage: 120 MG, QD
     Route: 048
     Dates: start: 20160710, end: 20160713
  4. HIDROCLOROTIAZIDA (1343A) [Interacting]
     Active Substance: HYDROCHLOROTHIAZIDE
     Indication: CARDIAC FAILURE
     Dosage: 50 MG, QD
     Route: 048
     Dates: start: 20160710, end: 20160721
  5. SEGURIL 40 MG COMPRIMIDOS , 10 COMPRIMIDOS [Concomitant]
     Indication: CARDIAC FAILURE ACUTE
     Dosage: 160 MG, QD
     Route: 048
     Dates: end: 20160709
  6. SEGURIL 40 MG COMPRIMIDOS , 10 COMPRIMIDOS [Interacting]
     Active Substance: FUROSEMIDE
     Indication: CARDIAC FAILURE
     Dosage: 160 MG, QD
     Route: 048
     Dates: start: 20160714, end: 20160721

REACTIONS (2)
  - Hypokalaemia [Recovered/Resolved]
  - Hyponatraemia [Recovered/Resolved]

NARRATIVE: CASE EVENT DATE: 20160719
